FAERS Safety Report 21831541 (Version 1)
Quarter: 2023Q1

REPORT INFORMATION
  Report Type: Report from Study
  Country: US (occurrence: None)
  Receive Date: 20230106
  Receipt Date: 20230106
  Transmission Date: 20230418
  Serious: Yes (Other)
  Sender: FDA-Public Use
  Company Number: 2023A004047

PATIENT
  Sex: Male

DRUGS (6)
  1. TAGRISSO [Suspect]
     Active Substance: OSIMERTINIB
     Route: 048
     Dates: start: 202202
  2. IMFINZI [Suspect]
     Active Substance: DURVALUMAB
     Route: 058
  3. TAXOL [Concomitant]
     Active Substance: PACLITAXEL
  4. CARBOPLATIN [Concomitant]
     Active Substance: CARBOPLATIN
  5. AVASTIN [Concomitant]
     Active Substance: BEVACIZUMAB
  6. TECENTRIQ [Concomitant]
     Active Substance: ATEZOLIZUMAB

REACTIONS (6)
  - Malignant neoplasm progression [Unknown]
  - Metastases to bone [Unknown]
  - Toxicity to various agents [Unknown]
  - Metastases to central nervous system [Unknown]
  - Neutropenia [Unknown]
  - Chronic kidney disease [Unknown]
